FAERS Safety Report 8293057-1 (Version None)
Quarter: 2012Q2

REPORT INFORMATION
  Report Type: 
  Country: None (occurrence: None)
  Receive Date: 20120417
  Receipt Date: 20111007
  Transmission Date: 20120825
  Serious: No
  Sender: FDA-Public Use
  Company Number: US-ASTRAZENECA-2009UW06860

PATIENT
  Age: 61 Year
  Sex: Female

DRUGS (2)
  1. NEXIUM [Suspect]
     Route: 048
  2. ASPIRIN [Concomitant]

REACTIONS (3)
  - INFLUENZA [None]
  - GASTROOESOPHAGEAL REFLUX DISEASE [None]
  - DIABETES MELLITUS [None]
